FAERS Safety Report 17717929 (Version 5)
Quarter: 2020Q2

REPORT INFORMATION
  Report Type: Spontaneous
  Country: AU (occurrence: AU)
  Receive Date: 20200428
  Receipt Date: 20200521
  Transmission Date: 20200714
  Serious: Yes (Hospitalization, Other)
  Sender: FDA-Public Use
  Company Number: AU-BRISTOL-MYERS SQUIBB COMPANY-BMS-2020-033687

PATIENT
  Age: 86 Year
  Sex: Male
  Weight: 74 kg

DRUGS (13)
  1. ELIQUIS [Suspect]
     Active Substance: APIXABAN
     Indication: PRODUCT USED FOR UNKNOWN INDICATION
     Dosage: 5 MILLIGRAM, BID
     Route: 048
     Dates: start: 20200427
  2. PRAZOSIN. [Concomitant]
     Active Substance: PRAZOSIN
     Indication: HYPERTENSION
     Dosage: 0.5 MILLIGRAM
     Route: 048
     Dates: start: 2016
  3. ALLOPURINOL. [Concomitant]
     Active Substance: ALLOPURINOL
     Indication: GOUT
     Dosage: 300 MILLIGRAM
     Route: 048
     Dates: start: 2000
  4. ELIQUIS [Suspect]
     Active Substance: APIXABAN
     Indication: CEREBROVASCULAR ACCIDENT PROPHYLAXIS
     Dosage: 5 MILLIGRAM, BID
     Route: 048
     Dates: start: 2017, end: 20200418
  5. CALCIUM [CALCIUM CARBONATE] [Concomitant]
     Indication: OSTEOPOROSIS
     Dosage: 300 MILLIGRAM DAILY
     Route: 048
     Dates: start: 2010
  6. TAFAMIDIS [Concomitant]
     Active Substance: TAFAMIDIS MEGLUMINE
     Indication: CARDIAC AMYLOIDOSIS
     Dosage: 61 MILLIGRAM
     Route: 048
     Dates: start: 20200317
  7. PREGABALIN. [Concomitant]
     Active Substance: PREGABALIN
     Indication: BACK PAIN
     Dosage: 75 MILLIGRAM, BID
     Route: 048
     Dates: start: 2015
  8. SOMAC [Concomitant]
     Active Substance: PANTOPRAZOLE SODIUM
     Indication: GASTROOESOPHAGEAL REFLUX DISEASE
     Dosage: 40 MILLIGRAM DAILY
     Route: 048
     Dates: start: 2010
  9. LIPITOR [Concomitant]
     Active Substance: ATORVASTATIN CALCIUM
     Indication: HYPERCHOLESTEROLAEMIA
     Dosage: 40 MILLIGRAM DAILY
     Route: 048
     Dates: start: 2010
  10. FUROSEMIDE. [Concomitant]
     Active Substance: FUROSEMIDE
     Indication: LEFT VENTRICULAR FAILURE
     Dosage: 40 MILLIGRAM DAILY
     Route: 048
     Dates: start: 2018
  11. NICOTINAMIDE [Concomitant]
     Active Substance: NIACINAMIDE
     Indication: PROPHYLAXIS
     Dosage: 1000 MILLIGRAM DAILY
     Route: 048
     Dates: start: 201903
  12. ALDACTONE [Concomitant]
     Active Substance: SPIRONOLACTONE
     Indication: LEFT VENTRICULAR FAILURE
     Dosage: 12.5 MILLIGRAM, BID
     Route: 048
     Dates: start: 2018
  13. PANADOL [Concomitant]
     Active Substance: ACETAMINOPHEN
     Indication: OSTEOPOROSIS
     Dosage: 600 MILLIGRAM, QID
     Route: 048
     Dates: start: 2010

REACTIONS (4)
  - Squamous cell carcinoma [Not Recovered/Not Resolved]
  - Arthropathy [Unknown]
  - Post procedural haematuria [Recovered/Resolved]
  - Prostatomegaly [Unknown]

NARRATIVE: CASE EVENT DATE: 20200418
